FAERS Safety Report 14544051 (Version 1)
Quarter: 2018Q1

REPORT INFORMATION
  Report Type: Spontaneous
  Country: ZA (occurrence: ZA)
  Receive Date: 20180216
  Receipt Date: 20180216
  Transmission Date: 20180509
  Serious: Yes (Death, Other)
  Sender: FDA-Public Use
  Company Number: ZA-PFIZER INC-2018064219

PATIENT
  Age: 84 Year
  Sex: Female

DRUGS (7)
  1. PREXUM [Suspect]
     Active Substance: PERINDOPRIL ERBUMINE
     Dosage: 10 MG, UNK
  2. CARDICOR [Suspect]
     Active Substance: BISOPROLOL
     Dosage: 2.5 MG, UNK
  3. ASPAVOR [Suspect]
     Active Substance: ATORVASTATIN
     Dosage: 10 MG, UNK
  4. PURICOS [Suspect]
     Active Substance: ALLOPURINOL
     Dosage: 300 MG, UNK
  5. AMLOC /00550802/ [Suspect]
     Active Substance: RANITIDINE HYDROCHLORIDE
     Dosage: 5 MG, UNK
  6. CLOPIWIN [Suspect]
     Active Substance: CLOPIDOGREL BISULFATE
     Dosage: 75 MG, UNK
  7. ADCO-RETIC [Suspect]
     Active Substance: AMILORIDE HYDROCHLORIDE\HYDROCHLOROTHIAZIDE
     Dosage: 5/50 MG

REACTIONS (2)
  - Cerebrovascular accident [Fatal]
  - Vomiting [Unknown]

NARRATIVE: CASE EVENT DATE: 20180119
